FAERS Safety Report 11157580 (Version 1)
Quarter: 2015Q2

REPORT INFORMATION
  Report Type: Spontaneous
  Country: US (occurrence: None)
  Receive Date: 20150601
  Receipt Date: 20150601
  Transmission Date: 20150821
  Serious: Yes (Death, Hospitalization)
  Sender: FDA-Public Use
  Company Number: 2015SA068632

PATIENT
  Age: 38 Year
  Sex: Male
  Weight: 91.2 kg

DRUGS (10)
  1. NAPROXEN (UNKNOWN) [Suspect]
     Active Substance: NAPROXEN
     Indication: SUICIDE ATTEMPT
     Route: 048
  2. PROPRANOLOL [Concomitant]
     Active Substance: PROPRANOLOL\PROPRANOLOL HYDROCHLORIDE
  3. LORAZEPAM. [Concomitant]
     Active Substance: LORAZEPAM
  4. OMEPRAZOLE. [Concomitant]
     Active Substance: OMEPRAZOLE
  5. PREGABALIN. [Concomitant]
     Active Substance: PREGABALIN
  6. TADALAFIL [Concomitant]
     Active Substance: TADALAFIL
  7. DIPHENHYDRAMINE / UNKNOWN / UNKNOWN [Suspect]
     Active Substance: DIPHENHYDRAMINE
     Indication: SUICIDE ATTEMPT
     Route: 048
  8. DICLOFENAC SALT NOT SPECIFIED [Suspect]
     Active Substance: DICLOFENAC
     Indication: SUICIDE ATTEMPT
     Route: 048
  9. VERAPAMIL (UNKNOWN) [Suspect]
     Active Substance: VERAPAMIL HYDROCHLORIDE
     Indication: SUICIDE ATTEMPT
  10. DULOXETINE [Concomitant]
     Active Substance: DULOXETINE

REACTIONS (5)
  - Unresponsive to stimuli [None]
  - Pulmonary oedema [None]
  - Intentional overdose [None]
  - Overdose [None]
  - Completed suicide [None]
